FAERS Safety Report 25469815 (Version 1)
Quarter: 2025Q2

REPORT INFORMATION
  Report Type: Spontaneous
  Country: US (occurrence: US)
  Receive Date: 20250623
  Receipt Date: 20250623
  Transmission Date: 20250717
  Serious: Yes (Other)
  Sender: NOVO NORDISK
  Company Number: US-NOVOPROD-1460732

PATIENT
  Age: 73 Year
  Sex: Female

DRUGS (1)
  1. NOVOLOG [Suspect]
     Active Substance: INSULIN ASPART
     Indication: Product used for unknown indication
     Dates: start: 201601

REACTIONS (7)
  - Cataract [Unknown]
  - Knee arthroplasty [Unknown]
  - Limb injury [Unknown]
  - Trigger finger [Unknown]
  - Carpal tunnel syndrome [Unknown]
  - Lipoma [Unknown]
  - Protein urine [Unknown]

NARRATIVE: CASE EVENT DATE: 20180101
